FAERS Safety Report 5425533-0 (Version None)
Quarter: 2007Q3

REPORT INFORMATION
  Report Type: 
  Country: None (occurrence: None)
  Receive Date: 20070824
  Receipt Date: 20070813
  Transmission Date: 20080115
  Serious: Yes (Other)
  Sender: FDA-Public Use
  Company Number: US-PFIZER INC-2007053623

PATIENT
  Age: 55 Year
  Sex: Male

DRUGS (7)
  1. CHANTIX [Suspect]
     Indication: SMOKING CESSATION THERAPY
  2. FLEXERIL [Suspect]
     Indication: MUSCLE TWITCHING
  3. CLONAZEPAM [Suspect]
     Indication: MUSCLE TWITCHING
  4. LIPITOR [Concomitant]
     Dosage: DAILY DOSE:40MG
  5. ASPIRIN [Concomitant]
     Dosage: DAILY DOSE:81MG
  6. OMEGA 3 [Concomitant]
  7. OMEGA 6 TRIGLYCERIDES [Concomitant]

REACTIONS (7)
  - HERNIA [None]
  - MENTAL DISORDER [None]
  - MENTAL IMPAIRMENT [None]
  - NERVOUS SYSTEM DISORDER [None]
  - NUCLEAR MAGNETIC RESONANCE IMAGING BRAIN ABNORMAL [None]
  - PHYSICAL DISABILITY [None]
  - SEDATION [None]
